FAERS Safety Report 7099738-X (Version None)
Quarter: 2010Q4

REPORT INFORMATION
  Report Type: 
  Country: None (occurrence: None)
  Receive Date: 20101112
  Receipt Date: 20101108
  Transmission Date: 20110411
  Serious: Yes (Hospitalization)
  Sender: FDA-Public Use
  Company Number: GR-ABBOTT-10P-066-0682455-00

PATIENT
  Age: 81 Year
  Sex: Male
  Weight: 90 kg

DRUGS (1)
  1. ZEMPLAR [Suspect]
     Indication: HYPERPARATHYROIDISM SECONDARY
     Route: 042
     Dates: start: 20090112

REACTIONS (1)
  - ILEUS [None]
